FAERS Safety Report 4642026-9 (Version None)
Quarter: 2005Q2

REPORT INFORMATION
  Report Type: 
  Country: None (occurrence: None)
  Receive Date: 20050420
  Receipt Date: 20050411
  Transmission Date: 20051028
  Serious: Yes (Other)
  Sender: FDA-Public Use
  Company Number: 2005057685

PATIENT
  Age: 75 Year
  Sex: Female
  Weight: 95.2554 kg

DRUGS (9)
  1. BEXTRA [Suspect]
     Indication: KNEE OPERATION
     Dosage: 10 MG (10 MG, 1 IN 1 D), ORAL
     Route: 048
     Dates: end: 20050411
  2. AMLODIPINE BESYLATE [Concomitant]
  3. ATENOLOL [Concomitant]
  4. ISOSORBIDE DINITRATE [Concomitant]
  5. SIMVASTATIN [Concomitant]
  6. QUINAPRIL HCL [Concomitant]
  7. PROPACET 100 [Concomitant]
  8. OXYCODONE HCL [Concomitant]
  9. ASPIRIN [Concomitant]

REACTIONS (2)
  - KNEE ARTHROPLASTY [None]
  - PRURITUS [None]
